FAERS Safety Report 5407000-3 (Version None)
Quarter: 2007Q3

REPORT INFORMATION
  Report Type: 
  Country: None (occurrence: None)
  Receive Date: 20070803
  Receipt Date: 20070803
  Transmission Date: 20080115
  Serious: Yes (Hospitalization)
  Sender: FDA-Public Use
  Company Number: None

PATIENT
  Age: 69 Year
  Sex: Male

DRUGS (1)
  1. VINBLASTINE SULFATE [Suspect]
     Indication: NEOPLASM MALIGNANT
     Dosage: 11MG ONCE IV
     Route: 042
     Dates: start: 20070718, end: 20070718

REACTIONS (1)
  - CONSTIPATION [None]
